FAERS Safety Report 7486659-3 (Version None)
Quarter: 2011Q2

REPORT INFORMATION
  Report Type: 
  Country: None (occurrence: None)
  Receive Date: 20110517
  Receipt Date: 20100720
  Transmission Date: 20111010
  Serious: No
  Sender: FDA-Public Use
  Company Number: US-NOVEN-ALL1-2010-03947

PATIENT

DRUGS (1)
  1. DAYTRANA [Suspect]
     Dosage: 10 MG, 1X/DAY:QD
     Route: 062
     Dates: start: 20091001

REACTIONS (8)
  - HYPERHIDROSIS [None]
  - THERAPEUTIC RESPONSE DELAYED [None]
  - DECREASED APPETITE [None]
  - PRODUCT QUALITY ISSUE [None]
  - APPLICATION SITE EROSION [None]
  - WEIGHT DECREASED [None]
  - WRONG TECHNIQUE IN DRUG USAGE PROCESS [None]
  - APPLICATION SITE IRRITATION [None]
